FAERS Safety Report 4629378-0 (Version None)
Quarter: 2005Q2

REPORT INFORMATION
  Report Type: 
  Country: None (occurrence: None)
  Receive Date: 20050405
  Receipt Date: 20050303
  Transmission Date: 20051028
  Serious: Yes (Death, Hospitalization)
  Sender: FDA-Public Use
  Company Number: 10477

PATIENT
  Age: 7 Year
  Sex: Female

DRUGS (5)
  1. METHOTREXATE [Suspect]
     Indication: BURKITT'S LYMPHOMA
     Route: 037
  2. VINCRISTINE SULFATE [Suspect]
     Indication: BURKITT'S LYMPHOMA
     Route: 042
  3. CYCLOPHOSPHAMIDE [Suspect]
     Indication: BURKITT'S LYMPHOMA
     Route: 042
  4. PREDNISONE [Suspect]
     Indication: BURKITT'S LYMPHOMA
     Dosage: 30 MG/M2 BID
     Route: 048
  5. HYDROCORTISONE [Suspect]
     Indication: BURKITT'S LYMPHOMA
     Route: 037

REACTIONS (3)
  - ANAEMIA [None]
  - CARDIAC FAILURE [None]
  - ESCHERICHIA SEPSIS [None]
